FAERS Safety Report 7986514-6 (Version None)
Quarter: 2011Q4

REPORT INFORMATION
  Report Type: 
  Country: None (occurrence: None)
  Receive Date: 20111216
  Receipt Date: 20110201
  Transmission Date: 20120403
  Serious: Yes (Hospitalization)
  Sender: FDA-Public Use
  Company Number: US-BRISTOL-MYERS SQUIBB COMPANY-15527864

PATIENT
  Age: 13 Year
  Sex: Male

DRUGS (1)
  1. ABILIFY [Suspect]
     Indication: AGGRESSION
     Dosage: 1MG/DAY THEN INCREASED TO 4MG, 5MG(INCREASED OF 1MG/MONTH).

REACTIONS (8)
  - OROPHARYNGEAL PAIN [None]
  - DEHYDRATION [None]
  - DIARRHOEA [None]
  - NASOPHARYNGITIS [None]
  - DECREASED APPETITE [None]
  - VOMITING [None]
  - DYSTONIA [None]
  - ABDOMINAL PAIN UPPER [None]
